FAERS Safety Report 8472753-7 (Version None)
Quarter: 2012Q2

REPORT INFORMATION
  Report Type: 
  Country: None (occurrence: None)
  Receive Date: 20120627
  Receipt Date: 20110919
  Transmission Date: 20120825
  Serious: No
  Sender: FDA-Public Use
  Company Number: US-BAYER-2011-070863

PATIENT

DRUGS (3)
  1. ACETAMINOPHEN [Concomitant]
  2. BENADRYL [Concomitant]
  3. LEUKINE [Suspect]
     Indication: PRODUCT USED FOR UNKNOWN INDICATION

REACTIONS (2)
  - CHILLS [None]
  - VOMITING [None]
